FAERS Safety Report 24450464 (Version 1)
Quarter: 2024Q4

REPORT INFORMATION
  Report Type: Spontaneous
  Country: US (occurrence: None)
  Receive Date: 20241016
  Receipt Date: 20241016
  Transmission Date: 20250115
  Serious: Yes (Hospitalization)
  Sender: Public
  Company Number: None

PATIENT
  Sex: Male

DRUGS (9)
  1. TREMFYA [Suspect]
     Active Substance: GUSELKUMAB
     Indication: Psoriasis
     Route: 058
     Dates: start: 20230131
  2. BENZONATATE [Concomitant]
     Active Substance: BENZONATATE
  3. BOOSTRIX [Concomitant]
     Active Substance: TETANUS TOXOID, REDUCED DIPHTHERIA TOXOID AND ACELLULAR PERTUSSIS VACCINE, ADSORBED ANTIGENS
  4. CLOBETASOL [Concomitant]
     Active Substance: CLOBETASOL
  5. PREDNISONE [Concomitant]
     Active Substance: PREDNISONE
  6. PROMETHAZINE SOL DM [Concomitant]
  7. SERNIVO [Concomitant]
     Active Substance: BETAMETHASONE DIPROPIONATE
  8. TREMFYA [Concomitant]
     Active Substance: GUSELKUMAB
  9. TWINRIX [Concomitant]
     Active Substance: HEPATITIS A VIRUS STRAIN HM175 ANTIGEN (FORMALDEHYDE INACTIVATED)\HEPATITIS B VIRUS SUBTYPE ADW2 HBS

REACTIONS (1)
  - Infection [None]
